FAERS Safety Report 4509245-3 (Version None)
Quarter: 2004Q4

REPORT INFORMATION
  Report Type: 
  Country: None (occurrence: None)
  Receive Date: 20041025
  Receipt Date: 20040625
  Transmission Date: 20050328
  Serious: Yes (Hospitalization)
  Sender: FDA-Public Use
  Company Number: US-JNJFOC-20040700447

PATIENT
  Age: 66 Year
  Sex: Female

DRUGS (6)
  1. REMICADE [Suspect]
     Indication: RHEUMATOID ARTHRITIS
     Dosage: 3 MG/KG, INTRAVENOUS
     Route: 042
     Dates: start: 20040617
  2. PRILOSEC [Concomitant]
  3. PLAVIX [Concomitant]
  4. METHOTREXATE SODIUM [Concomitant]
  5. CELEBREX [Concomitant]
  6. ZETIA (CHOLESTEROL - AND TRIGLYCERIDE REDUCERS) [Concomitant]

REACTIONS (1)
  - HEADACHE [None]
